FAERS Safety Report 6204123-6 (Version None)
Quarter: 2009Q2

REPORT INFORMATION
  Report Type: 
  Country: None (occurrence: None)
  Receive Date: 20090526
  Receipt Date: 20090526
  Transmission Date: 20091009
  Serious: No
  Sender: FDA-Public Use
  Company Number: None

PATIENT
  Age: 23 Year
  Sex: Female
  Weight: 43.0917 kg

DRUGS (1)
  1. CAMILA [Suspect]
     Indication: MENSTRUAL DISORDER
     Dosage: 28 PILLS ONCE A DAY PO
     Route: 048
     Dates: start: 20080101, end: 20090101

REACTIONS (2)
  - DRUG INEFFECTIVE [None]
  - SKIN DISCOLOURATION [None]
